FAERS Safety Report 17882067 (Version 1)
Quarter: 2020Q2

REPORT INFORMATION
  Report Type: Spontaneous
  Country: US (occurrence: US)
  Receive Date: 20200610
  Receipt Date: 20200610
  Transmission Date: 20200714
  Serious: No
  Sender: FDA-Public Use
  Company Number: US-SEPTODONT-202005746

PATIENT
  Age: 9 Year
  Sex: Male

DRUGS (2)
  1. SEPTOCAINE [Suspect]
     Active Substance: ARTICAINE HYDROCHLORIDE\EPINEPHRINE BITARTRATE
     Indication: DENTAL LOCAL ANAESTHESIA
     Dosage: ADDITIONAL ANAESTHETIC
     Route: 004
     Dates: start: 20200210, end: 20200210
  2. ULTRADENT [Concomitant]
     Indication: DENTAL LOCAL ANAESTHESIA
     Route: 004
     Dates: start: 20200210, end: 20200210

REACTIONS (3)
  - Procedural pain [Recovered/Resolved]
  - Injection site pain [Recovered/Resolved]
  - Drug ineffective [Recovered/Resolved]

NARRATIVE: CASE EVENT DATE: 20200210
